FAERS Safety Report 10583364 (Version 1)
Quarter: 2014Q4

REPORT INFORMATION
  Report Type: Report from Study
  Country: JP (occurrence: None)
  Receive Date: 20141112
  Receipt Date: 20141112
  Transmission Date: 20150529
  Serious: Yes (Death, Other)
  Sender: FDA-Public Use
  Company Number: JP-017636

PATIENT
  Age: 73 Year
  Sex: Male

DRUGS (2)
  1. DEGARELIX (GONAX) (240 MG, 80 MG) [Suspect]
     Active Substance: DEGARELIX
     Indication: PROSTATE CANCER
     Route: 058
     Dates: start: 20130828, end: 20130829
  2. CASODEX [Concomitant]
     Active Substance: BICALUTAMIDE

REACTIONS (2)
  - Head and neck cancer [None]
  - Laryngeal cancer [None]

NARRATIVE: CASE EVENT DATE: 201401
